FAERS Safety Report 24768839 (Version 2)
Quarter: 2024Q4

REPORT INFORMATION
  Report Type: Spontaneous
  Country: NL (occurrence: NL)
  Receive Date: 20241224
  Receipt Date: 20241230
  Transmission Date: 20250115
  Serious: Yes (Hospitalization)
  Sender: AUROBINDO
  Company Number: NL-ARISTO PHARMA-VORI202409191

PATIENT
  Age: 48 Year
  Sex: Female

DRUGS (3)
  1. VORICONAZOLE [Interacting]
     Active Substance: VORICONAZOLE
     Indication: Bronchopulmonary aspergillosis
     Dosage: 400 MG TWICE DAILY [BID] IN 24 H LOADING DOSE AND CONTINUED WITH 200 MG BID
     Route: 048
  2. VORICONAZOLE [Interacting]
     Active Substance: VORICONAZOLE
     Dosage: 200 MILLIGRAM, TWO TIMES A DAY (400 MG TWICE DAILY [BID] IN 24 H LOADING DOSE AND CONTINUED WITH 200
     Route: 048
  3. FLUCLOXACILLIN [Interacting]
     Active Substance: FLUCLOXACILLIN
     Indication: Staphylococcal infection
     Dosage: 6 GRAM, ONCE A DAY
     Route: 042

REACTIONS (3)
  - Drug ineffective [Unknown]
  - Drug level decreased [Unknown]
  - Drug interaction [Unknown]
